FAERS Safety Report 7454769-2 (Version None)
Quarter: 2011Q2

REPORT INFORMATION
  Report Type: 
  Country: None (occurrence: None)
  Receive Date: 20110503
  Receipt Date: 20100707
  Transmission Date: 20111010
  Serious: Yes (Other)
  Sender: FDA-Public Use
  Company Number: US-PFIZER INC-2010085860

PATIENT
  Sex: Female

DRUGS (4)
  1. PREMARIN [Suspect]
     Dosage: UNK
     Dates: start: 19940101, end: 20050701
  2. PREMPRO [Suspect]
     Dosage: UNK
     Dates: start: 19940101, end: 20050701
  3. FEMHRT [Suspect]
     Dosage: UNK
     Dates: start: 19940101, end: 20050701
  4. PROVERA [Suspect]
     Dosage: UNK
     Dates: start: 19940101, end: 20050701

REACTIONS (1)
  - OVARIAN CANCER [None]
